FAERS Safety Report 23694278 (Version 1)
Quarter: 2024Q2

REPORT INFORMATION
  Report Type: Spontaneous
  Country: US (occurrence: US)
  Receive Date: 20240401
  Receipt Date: 20240401
  Transmission Date: 20240716
  Serious: No
  Sender: FDA-Public Use
  Company Number: US-INSUD PHARMA-2403US02590

PATIENT
  Sex: Female

DRUGS (3)
  1. PROGESTERONE [Suspect]
     Active Substance: PROGESTERONE
     Indication: Product used for unknown indication
     Dosage: 200 MG DAILY, BEFORE BED
     Route: 048
     Dates: start: 202402
  2. PROGESTERONE [Suspect]
     Active Substance: PROGESTERONE
     Dosage: 200 MG DAILY, BEFORE BED
     Route: 048
     Dates: start: 2022
  3. ESTROGENS [Concomitant]
     Active Substance: ESTROGENS
     Indication: Product used for unknown indication
     Dosage: UNKNOWN
     Route: 061

REACTIONS (4)
  - Vaginal haemorrhage [Recovered/Resolved]
  - Therapeutic product effect decreased [Unknown]
  - Poor quality product administered [Unknown]
  - Product odour abnormal [Unknown]

NARRATIVE: CASE EVENT DATE: 20240101
